FAERS Safety Report 13305758 (Version 1)
Quarter: 2017Q1

REPORT INFORMATION
  Report Type: Spontaneous
  Country: US (occurrence: US)
  Receive Date: 20170308
  Receipt Date: 20170308
  Transmission Date: 20170428
  Serious: Yes (Other)
  Sender: FDA-Public Use
  Company Number: None

PATIENT
  Age: 2 Year
  Sex: Male
  Weight: 12.15 kg

DRUGS (6)
  1. CULTURELLE [Concomitant]
     Active Substance: LACTOBACILLUS RHAMNOSUS
  2. COD FISH OIL [Concomitant]
  3. PEDIALAX [Concomitant]
  4. BUDESONIDE. [Concomitant]
     Active Substance: BUDESONIDE
  5. MIRALAX [Suspect]
     Active Substance: POLYETHYLENE GLYCOL 3350
     Indication: CONSTIPATION
     Route: 048
     Dates: start: 20170306, end: 20170306
  6. ZYRTEC [Concomitant]
     Active Substance: CETIRIZINE HYDROCHLORIDE

REACTIONS (7)
  - Initial insomnia [None]
  - Nervousness [None]
  - Off label use [None]
  - Aggression [None]
  - Paranoia [None]
  - Hallucination, visual [None]
  - Middle insomnia [None]

NARRATIVE: CASE EVENT DATE: 20170306
